FAERS Safety Report 18880071 (Version 1)
Quarter: 2021Q1

REPORT INFORMATION
  Report Type: Report from Study
  Country: None (occurrence: AU)
  Receive Date: 20210211
  Receipt Date: 20210211
  Transmission Date: 20210420
  Serious: Yes (Other)
  Sender: FDA-Public Use
  Company Number: AU-ABBVIE-21K-008-3766319-00

PATIENT
  Age: 58 Year
  Sex: Male

DRUGS (1)
  1. LUCRIN DEPOT [Suspect]
     Active Substance: LEUPROLIDE ACETATE
     Indication: PROSTATE CANCER
     Route: 030
     Dates: start: 201709, end: 2019

REACTIONS (6)
  - Asthenia [Unknown]
  - Malignant neoplasm of spinal cord [Not Recovered/Not Resolved]
  - Mood altered [Unknown]
  - Back pain [Unknown]
  - Unevaluable event [Unknown]
  - Alopecia [Unknown]

NARRATIVE: CASE EVENT DATE: 202101
